FAERS Safety Report 10907871 (Version 2)
Quarter: 2015Q1

REPORT INFORMATION
  Report Type: Spontaneous
  Country: IT (occurrence: None)
  Receive Date: 20150309
  Receipt Date: 20150320
  Transmission Date: 20150721
  Serious: Yes (Hospitalization)
  Sender: FDA-Public Use
  Company Number: IT2015K0734SPO

PATIENT
  Age: 66 Year
  Sex: Male

DRUGS (4)
  1. FLAGYL [Suspect]
     Active Substance: METRONIDAZOLE\METRONIDAZOLE HYDROCHLORIDE
     Indication: HELICOBACTER INFECTION
     Dosage: 1 G, PER DAY; ORAL
     Route: 048
     Dates: start: 20150130, end: 20150205
  2. LANSOPRAZOLE GENERIC (LANSOPRAZOLE) UNKNOWN [Suspect]
     Active Substance: LANSOPRAZOLE
     Indication: PRODUCT USED FOR UNKNOWN INDICATION
     Dosage: 30 MG, PER DAY, ORAL
     Route: 048
     Dates: start: 20141218
  3. COLCHICINE MICRONIZED [Suspect]
     Active Substance: COLCHICINE
     Indication: PERICARDITIS
     Dosage: 1 MG, PER DAY, ORAL
     Route: 048
     Dates: start: 20141219
  4. CLARITHROMYCIN WORLD (CLARITHROMYCIN) UNKNOWN [Suspect]
     Active Substance: CLARITHROMYCIN
     Indication: HELICOBACTER INFECTION
     Dosage: 1 G, PER DAY, ORAL
     Route: 048
     Dates: start: 20150130, end: 20150205

REACTIONS (6)
  - Blood lactate dehydrogenase increased [None]
  - Hyperuricaemia [None]
  - Diarrhoea [None]
  - Hepatic enzyme increased [None]
  - Abdominal pain upper [None]
  - Hepatitis acute [None]

NARRATIVE: CASE EVENT DATE: 20150205
